FAERS Safety Report 11855179 (Version 1)
Quarter: 2015Q4

REPORT INFORMATION
  Report Type: Spontaneous
  Country: GB (occurrence: GB)
  Receive Date: 20151221
  Receipt Date: 20151221
  Transmission Date: 20160305
  Serious: Yes (Life-Threatening, Other)
  Sender: FDA-Public Use
  Company Number: GB-WATSON-2015-14745

PATIENT
  Age: 64 Year
  Sex: Female
  Weight: 69.85 kg

DRUGS (1)
  1. METRONIDAZOLE. [Suspect]
     Active Substance: METRONIDAZOLE
     Indication: TOOTH ABSCESS
     Dosage: UNK
     Route: 048
     Dates: start: 20150605, end: 20150610

REACTIONS (5)
  - Pyrexia [Recovered/Resolved]
  - Migraine [Recovered/Resolved]
  - Dysphagia [Recovered/Resolved]
  - Pharyngeal oedema [Recovered/Resolved]
  - Musculoskeletal stiffness [Recovered/Resolved]

NARRATIVE: CASE EVENT DATE: 20150605
